FAERS Safety Report 6602223-X (Version None)
Quarter: 2010Q1

REPORT INFORMATION
  Report Type: 
  Country: None (occurrence: None)
  Receive Date: 20100225
  Receipt Date: 20100218
  Transmission Date: 20100710
  Serious: Yes (Other)
  Sender: FDA-Public Use
  Company Number: MX-B.I. PHARMACEUTICALS,INC./RIDGEFIELD-2010-MX-00020MX

PATIENT
  Age: 56 Year
  Sex: Male

DRUGS (1)
  1. SECOTEX OCAS [Suspect]
     Indication: BENIGN PROSTATIC HYPERPLASIA
     Dosage: ONE TABLET EVERY DAY
     Route: 048
     Dates: start: 20100217

REACTIONS (1)
  - HYPERSENSITIVITY [None]
